FAERS Safety Report 20516973 (Version 2)
Quarter: 2022Q1

REPORT INFORMATION
  Report Type: Spontaneous
  Country: BR (occurrence: BR)
  Receive Date: 20220225
  Receipt Date: 20220302
  Transmission Date: 20220424
  Serious: Yes (Hospitalization)
  Sender: FDA-Public Use
  Company Number: BR-NOVOPROD-893040

PATIENT
  Sex: Female

DRUGS (5)
  1. FIASP [Suspect]
     Active Substance: INSULIN ASPART
     Dosage: UNK
     Route: 065
  2. FIASP [Suspect]
     Active Substance: INSULIN ASPART
     Indication: Product used for unknown indication
     Dosage: UNK
     Route: 065
  3. PURAN [Concomitant]
     Active Substance: LEVOTHYROXINE SODIUM
     Indication: Anaemia prophylaxis
  4. ROSUVASTATIN [Concomitant]
     Active Substance: ROSUVASTATIN
     Indication: Anaemia prophylaxis
  5. IRON [Concomitant]
     Active Substance: IRON
     Indication: Anaemia prophylaxis

REACTIONS (2)
  - COVID-19 [Recovered/Resolved]
  - Blood glucose fluctuation [Unknown]

NARRATIVE: CASE EVENT DATE: 20220119
